FAERS Safety Report 9694182 (Version 2)
Quarter: 2013Q4

REPORT INFORMATION
  Report Type: Spontaneous
  Country: FR (occurrence: FR)
  Receive Date: 20131118
  Receipt Date: 20131118
  Transmission Date: 20140711
  Serious: Yes (Hospitalization)
  Sender: FDA-Public Use
  Company Number: FR-SANOFI-AVENTIS-2013SA087093

PATIENT
  Age: 95 Year
  Sex: Female

DRUGS (11)
  1. COAPROVEL [Suspect]
     Indication: HYPERTENSION
     Route: 048
     Dates: end: 20130723
  2. ALDACTONE [Interacting]
     Indication: PRODUCT USED FOR UNKNOWN INDICATION
     Dosage: STRENGTH: 25 MG
     Route: 048
     Dates: end: 20130723
  3. IDARAC [Concomitant]
     Route: 048
     Dates: start: 20130221, end: 20130723
  4. CARDENSIEL [Concomitant]
     Dosage: STRENGTH: 2.5 MG
     Route: 048
     Dates: end: 20130723
  5. LERCAN [Concomitant]
     Dosage: STRENGTH: 20 MG
     Route: 048
     Dates: end: 20130723
  6. AMIODARONE [Concomitant]
     Dosage: DOSE:1 UNIT(S)
     Route: 048
  7. KARDEGIC [Concomitant]
     Dosage: STRENGTH: 75 MG
     Route: 048
  8. TRANSIPEG [Concomitant]
     Dosage: DOSE:1 UNIT(S)
     Route: 048
  9. DEBRIDAT [Concomitant]
     Dosage: DOSE:1 UNIT(S)
     Route: 048
  10. OROCAL D(3) [Concomitant]
     Route: 048
  11. BACTRIM [Concomitant]
     Indication: URINARY TRACT INFECTION

REACTIONS (8)
  - Bradycardia [Unknown]
  - Renal failure acute [Recovered/Resolved]
  - Hyperkalaemia [Recovered/Resolved]
  - Hyponatraemia [Recovered/Resolved]
  - Blood creatinine increased [Recovered/Resolved]
  - Drug interaction [Unknown]
  - Rash erythematous [Recovered/Resolved]
  - Electrocardiogram abnormal [Unknown]
